FAERS Safety Report 17277150 (Version 4)
Quarter: 2020Q2

REPORT INFORMATION
  Report Type: Spontaneous
  Country: US (occurrence: US)
  Receive Date: 20200116
  Receipt Date: 20200605
  Transmission Date: 20200713
  Serious: Yes (Other)
  Sender: FDA-Public Use
  Company Number: US-JNJFOC-20200117233

PATIENT
  Sex: Male
  Weight: 127.12 kg

DRUGS (5)
  1. DICLOFENAC W/MISOPROSTOL [Concomitant]
     Active Substance: DICLOFENAC SODIUM\MISOPROSTOL
     Indication: ANKYLOSING SPONDYLITIS
     Route: 048
  2. SIMPONI [Suspect]
     Active Substance: GOLIMUMAB
     Indication: ANKYLOSING SPONDYLITIS
     Route: 058
     Dates: start: 201909
  3. SYNTHROID [Concomitant]
     Active Substance: LEVOTHYROXINE SODIUM
     Route: 048
  4. OMEPRAZOLE. [Concomitant]
     Active Substance: OMEPRAZOLE
     Indication: DYSPEPSIA
     Route: 048
  5. DICLOFENAC W/MISOPROSTOL [Concomitant]
     Active Substance: DICLOFENAC SODIUM\MISOPROSTOL
     Indication: SWELLING

REACTIONS (8)
  - Hernia [Unknown]
  - Accidental exposure to product [Unknown]
  - Swelling [Unknown]
  - Pain in extremity [Unknown]
  - Cholelithiasis [Unknown]
  - Drug delivery system malfunction [Unknown]
  - Drug ineffective [Unknown]
  - Product dose omission [Unknown]
